FAERS Safety Report 7888794-4 (Version None)
Quarter: 2011Q4

REPORT INFORMATION
  Report Type: 
  Country: None (occurrence: None)
  Receive Date: 20111031
  Receipt Date: 20111021
  Transmission Date: 20120403
  Serious: Yes (Other)
  Sender: FDA-Public Use
  Company Number: 2011SP050328

PATIENT
  Age: 24 Year
  Sex: Female
  Weight: 61.2356 kg

DRUGS (1)
  1. NUVARING [Suspect]
     Indication: CONTRACEPTION
     Dosage: ;VAG
     Route: 067
     Dates: start: 20061201

REACTIONS (8)
  - ABORTION [None]
  - UTERINE LEIOMYOMA [None]
  - INFERTILITY FEMALE [None]
  - PANCREATITIS [None]
  - PREGNANCY WITH CONTRACEPTIVE DEVICE [None]
  - FOETAL EXPOSURE DURING PREGNANCY [None]
  - ENDOCRINE DISORDER [None]
  - PELVIC INFLAMMATORY DISEASE [None]
